FAERS Safety Report 4779480-8 (Version None)
Quarter: 2005Q3

REPORT INFORMATION
  Report Type: 
  Country: None (occurrence: None)
  Receive Date: 20050923
  Receipt Date: 20050914
  Transmission Date: 20060218
  Serious: Yes (Life-Threatening, Hospitalization)
  Sender: FDA-Public Use
  Company Number: 217751

PATIENT
  Age: 36 Year
  Sex: Female
  Weight: 79.2 kg

DRUGS (4)
  1. RITUXIMAB (RITUXIMAB) CONC FOR SOLUTION FOR INFUSION, 100MG [Suspect]
     Indication: DIFFUSE LARGE B-CELL LYMPHOMA
     Dosage: 713 MG, Q3W, INTRAVENOUS
     Route: 042
     Dates: start: 20050901
  2. TYLENOL (ACETAMINOPHEN) [Concomitant]
  3. ATIVAN [Concomitant]
  4. BENADRYL [Concomitant]

REACTIONS (4)
  - ANAPHYLACTIC REACTION [None]
  - ANXIETY [None]
  - BODY TEMPERATURE DECREASED [None]
  - INFUSION RELATED REACTION [None]
